FAERS Safety Report 11347037 (Version 1)
Quarter: 2015Q3

REPORT INFORMATION
  Report Type: Spontaneous
  Country: US (occurrence: US)
  Receive Date: 20150803
  Receipt Date: 20150803
  Transmission Date: 20151125
  Serious: No
  Sender: FDA-Public Use
  Company Number: US-ELI_LILLY_AND_COMPANY-US201103006236

PATIENT
  Age: 56 Year
  Sex: Female

DRUGS (1)
  1. ZYPREXA [Suspect]
     Active Substance: OLANZAPINE
     Indication: BIPOLAR DISORDER
     Dosage: 5 MG, QD
     Dates: start: 201012, end: 201103

REACTIONS (7)
  - Nausea [Unknown]
  - Fatigue [Unknown]
  - Crying [Unknown]
  - Thinking abnormal [Unknown]
  - Confusional state [Unknown]
  - Bipolar disorder [Unknown]
  - Tremor [Unknown]

NARRATIVE: CASE EVENT DATE: 20110315
